FAERS Safety Report 10207139 (Version 1)
Quarter: 2014Q2

REPORT INFORMATION
  Report Type: Spontaneous
  Country: US (occurrence: US)
  Receive Date: 20140530
  Receipt Date: 20140530
  Transmission Date: 20141212
  Serious: No
  Sender: FDA-Public Use
  Company Number: US-GLAXOSMITHKLINE-A1020513A

PATIENT
  Age: 79 Year
  Sex: Female

DRUGS (16)
  1. VENTOLIN [Suspect]
     Indication: CHRONIC OBSTRUCTIVE PULMONARY DISEASE
     Dosage: 2PUFF AS REQUIRED
     Route: 055
     Dates: start: 201301, end: 20130415
  2. SYMBICORT [Suspect]
     Indication: CHRONIC OBSTRUCTIVE PULMONARY DISEASE
     Dosage: 2PUFF TWICE PER DAY
     Route: 055
     Dates: start: 201211, end: 20130415
  3. ORAJEL [Concomitant]
  4. PREDNISONE [Concomitant]
  5. CRESTOR [Concomitant]
  6. ALPRAZOLAM [Concomitant]
  7. TRIAMTERENE/HCTZ [Concomitant]
  8. SERTRALINE HCL [Concomitant]
  9. METOPROLOL TARTRATE [Concomitant]
  10. SYNTHROID [Concomitant]
  11. COUMADIN [Concomitant]
  12. POTASSIUM [Concomitant]
  13. TORSEMIDE [Concomitant]
  14. NEXIUM [Concomitant]
  15. OXYGEN [Concomitant]
  16. ALBUTEROL/IPRATROPIUM [Concomitant]

REACTIONS (7)
  - Aphthous stomatitis [Not Recovered/Not Resolved]
  - Oral herpes [Not Recovered/Not Resolved]
  - Gingival pain [Not Recovered/Not Resolved]
  - Oral disorder [Not Recovered/Not Resolved]
  - Cough [Not Recovered/Not Resolved]
  - Productive cough [Not Recovered/Not Resolved]
  - Vomiting [Not Recovered/Not Resolved]
